FAERS Safety Report 25032705 (Version 1)
Quarter: 2025Q1

REPORT INFORMATION
  Report Type: Spontaneous
  Country: CA (occurrence: CA)
  Receive Date: 20250303
  Receipt Date: 20250303
  Transmission Date: 20250409
  Serious: Yes (Hospitalization)
  Sender: MERCK SHARP & DOHME LLC
  Company Number: CA-009507513-2259986

PATIENT
  Age: 13 Year
  Sex: Male
  Weight: 39 kg

DRUGS (56)
  1. POSACONAZOLE [Suspect]
     Active Substance: POSACONAZOLE
     Indication: Pulmonary alveolar haemorrhage
     Route: 048
  2. KETAMINE [Concomitant]
     Active Substance: KETAMINE
     Route: 065
  3. LANSOPRAZOLE [Concomitant]
     Active Substance: LANSOPRAZOLE
     Route: 065
  4. LEVETIRACETAM [Concomitant]
     Active Substance: LEVETIRACETAM
     Route: 065
  5. LEVOFLOXACIN [Concomitant]
     Active Substance: LEVOFLOXACIN
     Route: 065
  6. ACETAMINOPHEN [Concomitant]
     Active Substance: ACETAMINOPHEN
     Route: 065
  7. ACYCLOVIR [Concomitant]
     Active Substance: ACYCLOVIR
     Route: 065
  8. AMLODIPINE [Concomitant]
     Active Substance: AMLODIPINE BESYLATE
     Route: 065
  9. AMPHOTERICIN B [Concomitant]
     Active Substance: AMPHOTERICIN B
     Route: 065
  10. BUSULFAN [Concomitant]
     Active Substance: BUSULFAN
     Route: 065
  11. CALCIUM CARBONATE [Concomitant]
     Active Substance: CALCIUM CARBONATE
     Route: 065
  12. CARDENE [Concomitant]
     Active Substance: NICARDIPINE HYDROCHLORIDE
     Route: 065
  13. CEFTAZIDIME [Concomitant]
     Active Substance: CEFTAZIDIME
     Route: 065
  14. CELECOXIB [Concomitant]
     Active Substance: CELECOXIB
     Route: 065
  15. CETIRIZINE [Concomitant]
     Active Substance: CETIRIZINE HYDROCHLORIDE
     Route: 065
  16. CHOLECALCIFEROL [Concomitant]
     Active Substance: CHOLECALCIFEROL
     Route: 065
  17. CICLESONIDE [Concomitant]
     Active Substance: CICLESONIDE
     Route: 065
  18. DEXMEDETOMIDINE [Concomitant]
     Active Substance: DEXMEDETOMIDINE
     Route: 065
  19. FAMOTIDINE [Concomitant]
     Active Substance: FAMOTIDINE
     Route: 065
  20. FLUCONAZOLE [Concomitant]
     Active Substance: FLUCONAZOLE
     Route: 065
  21. FLUDARABINE [Concomitant]
     Active Substance: FLUDARABINE PHOSPHATE
     Route: 065
  22. FUROSEMIDE [Concomitant]
     Active Substance: FUROSEMIDE
     Route: 065
  23. GABAPENTIN [Concomitant]
     Active Substance: GABAPENTIN
     Route: 065
  24. GRANISETRON [Concomitant]
     Active Substance: GRANISETRON
     Route: 065
  25. LORAZEPAM [Concomitant]
     Active Substance: LORAZEPAM
     Route: 065
  26. MAGNESIUM [Concomitant]
     Active Substance: MAGNESIUM
     Route: 065
  27. MEROPENEM [Concomitant]
     Active Substance: MEROPENEM
     Route: 065
  28. METHYLPREDNISOLONE [Concomitant]
     Active Substance: METHYLPREDNISOLONE
     Route: 065
  29. METOCLOPRAMIDE [Concomitant]
     Active Substance: METOCLOPRAMIDE
     Route: 065
  30. MYCAMINE [Concomitant]
     Active Substance: MICAFUNGIN SODIUM
     Route: 065
  31. MYCOPHENOLATE MOFETIL [Concomitant]
     Active Substance: MYCOPHENOLATE MOFETIL
     Route: 050
  32. NIFEDIPINE [Concomitant]
     Active Substance: NIFEDIPINE
     Route: 065
  33. NOREPINEPHRINE [Concomitant]
     Active Substance: NOREPINEPHRINE
     Route: 065
  34. OLANZAPINE [Concomitant]
     Active Substance: OLANZAPINE
     Route: 065
  35. ONDANSETRON [Concomitant]
     Active Substance: ONDANSETRON
     Route: 065
  36. PANTOPRAZOLE [Concomitant]
     Active Substance: PANTOPRAZOLE
     Route: 065
  37. PENTAMIDINE ISETHIONATE INJ 300MG/VIAL BP [Concomitant]
     Route: 065
  38. PHYTONADIONE [Concomitant]
     Active Substance: PHYTONADIONE
     Route: 065
  39. PIPERACILLIN SODIUM\TAZOBACTAM SODIUM [Concomitant]
     Active Substance: PIPERACILLIN SODIUM\TAZOBACTAM SODIUM
     Route: 065
  40. POLYETHYLENE GLYCOL [Concomitant]
     Active Substance: POLYETHYLENE GLYCOL
     Route: 065
  41. PREDNISONE [Concomitant]
     Active Substance: PREDNISONE
     Route: 065
  42. PROPOFOL [Concomitant]
     Active Substance: PROPOFOL
     Route: 065
  43. ANTI-THYMOCYTE GLOBULIN (RABBIT) NOS [Concomitant]
     Active Substance: LAPINE T-LYMPHOCYTE IMMUNE GLOBULIN
     Route: 065
  44. SCOPOLAMINE [Concomitant]
     Active Substance: SCOPOLAMINE
     Route: 065
  45. SENNOSIDES [Concomitant]
     Active Substance: SENNOSIDES
     Route: 065
  46. SPIRONOLACTONE [Concomitant]
     Active Substance: SPIRONOLACTONE
     Route: 065
  47. TPN [Concomitant]
     Active Substance: AMINO ACIDS\DEXTROSE\ELECTROLYTES NOS\SOYBEAN OIL
     Route: 065
  48. TRANEXAMIC ACID [Concomitant]
     Active Substance: TRANEXAMIC ACID
     Route: 065
  49. SULFAMETHOXAZOLE\TRIMETHOPRIM [Concomitant]
     Active Substance: SULFAMETHOXAZOLE\TRIMETHOPRIM
     Route: 065
  50. URSODIOL [Concomitant]
     Active Substance: URSODIOL
     Route: 065
  51. VALACYCLOVIR [Concomitant]
     Active Substance: VALACYCLOVIR HYDROCHLORIDE
     Route: 065
  52. VANCOMYCIN [Concomitant]
     Active Substance: VANCOMYCIN
     Route: 065
  53. VORICONAZOLE [Concomitant]
     Active Substance: VORICONAZOLE
     Route: 065
  54. PREVYMIS [Concomitant]
     Active Substance: LETERMOVIR
     Route: 065
  55. IVERMECTIN [Concomitant]
     Active Substance: IVERMECTIN
     Route: 065
  56. HYDROMORPHONE [Concomitant]
     Active Substance: HYDROMORPHONE
     Route: 065

REACTIONS (3)
  - Abdominal pain upper [Recovered/Resolved]
  - Hepatitis [Recovered/Resolved]
  - Chest pain [Recovered/Resolved]
